FAERS Safety Report 5808161-4 (Version None)
Quarter: 2008Q3

REPORT INFORMATION
  Report Type: 
  Country: None (occurrence: None)
  Receive Date: 20080708
  Receipt Date: 20080625
  Transmission Date: 20090109
  Serious: Yes (Hospitalization)
  Sender: FDA-Public Use
  Company Number: TCI2008A03248

PATIENT
  Age: 9 Decade
  Sex: Female

DRUGS (3)
  1. ACTOS [Suspect]
     Indication: TYPE 2 DIABETES MELLITUS
     Dosage: 15 MG (15 MG, 1 D) PER ORAL; AROUND JUN 5, 2008
     Route: 048
     Dates: start: 20080605
  2. CORTICOSTEROIDS [Concomitant]
  3. IMMUNOSUPPRESSIVE AGENTS [Concomitant]

REACTIONS (2)
  - DYSPNOEA [None]
  - PLEURAL EFFUSION [None]
